FAERS Safety Report 11839328 (Version 1)
Quarter: 2015Q4

REPORT INFORMATION
  Report Type: Spontaneous
  Country: GB (occurrence: GB)
  Receive Date: 20151216
  Receipt Date: 20151216
  Transmission Date: 20160305
  Serious: Yes (Life-Threatening, Hospitalization, Disabling, Other)
  Sender: FDA-Public Use
  Company Number: GB-ACCORD-036164

PATIENT
  Age: 47 Year
  Sex: Female
  Weight: 57.08 kg

DRUGS (4)
  1. METHOTREXATE [Suspect]
     Active Substance: METHOTREXATE
     Indication: RHEUMATOID ARTHRITIS
     Route: 051
     Dates: end: 2014
  2. OMEPRAZOLE. [Concomitant]
     Active Substance: OMEPRAZOLE
  3. ZOPICLONE [Concomitant]
     Active Substance: ZOPICLONE
  4. LEVOTHYROXINE/LEVOTHYROXINE SODIUM [Concomitant]

REACTIONS (18)
  - Injection site ulcer [Unknown]
  - General physical health deterioration [Unknown]
  - Malaise [Unknown]
  - Injection site pain [Unknown]
  - Neuralgia [Not Recovered/Not Resolved]
  - Vulvovaginal rash [Unknown]
  - Vulvovaginal dryness [Unknown]
  - Oral candidiasis [Not Recovered/Not Resolved]
  - Herpes zoster [Not Recovered/Not Resolved]
  - Sjogren^s syndrome [Not Recovered/Not Resolved]
  - Dry eye [Unknown]
  - Lichen sclerosus [Not Recovered/Not Resolved]
  - Abdominal discomfort [Unknown]
  - Rash [Unknown]
  - Dry mouth [Unknown]
  - Fatigue [Unknown]
  - Chest pain [Unknown]
  - Lung neoplasm malignant [Not Recovered/Not Resolved]

NARRATIVE: CASE EVENT DATE: 2013
